FAERS Safety Report 13997717 (Version 3)
Quarter: 2017Q4

REPORT INFORMATION
  Report Type: Spontaneous
  Country: JP (occurrence: JP)
  Receive Date: 20170921
  Receipt Date: 20171031
  Transmission Date: 20180321
  Serious: Yes (Other)
  Sender: FDA-Public Use
  Company Number: JP-GILEAD-2017-0293497

PATIENT
  Sex: Male

DRUGS (2)
  1. SOVALDI [Suspect]
     Active Substance: SOFOSBUVIR
     Indication: CHRONIC HEPATITIS C
     Dosage: 400 MG, UNK
     Route: 048
     Dates: start: 20170704, end: 20170914
  2. COPEGUS [Concomitant]
     Active Substance: RIBAVIRIN
     Indication: CHRONIC HEPATITIS C
     Dosage: UNK
     Route: 048
     Dates: start: 20170704, end: 20170914

REACTIONS (4)
  - Calculus urinary [Recovered/Resolved]
  - Kidney enlargement [Unknown]
  - Glomerular filtration rate decreased [Recovering/Resolving]
  - Urinary tract obstruction [Unknown]

NARRATIVE: CASE EVENT DATE: 201709
